FAERS Safety Report 14817327 (Version 2)
Quarter: 2018Q2

REPORT INFORMATION
  Report Type: Spontaneous
  Country: US (occurrence: US)
  Receive Date: 20180426
  Receipt Date: 20180518
  Transmission Date: 20180711
  Serious: No
  Sender: FDA-Public Use
  Company Number: US-LUNDBECK-DKLU2047465

PATIENT
  Age: 74 Year
  Sex: Male

DRUGS (2)
  1. NORTHERA [Suspect]
     Active Substance: DROXIDOPA
     Indication: PARKINSON^S DISEASE
     Route: 048
     Dates: start: 20180404, end: 20180406
  2. NORTHERA [Suspect]
     Active Substance: DROXIDOPA
     Indication: ORTHOSTATIC HYPOTENSION
     Dosage: SCHEDULE C AND TITRATING
     Route: 065
     Dates: start: 20180412

REACTIONS (5)
  - Hypersomnia [Unknown]
  - Balance disorder [Unknown]
  - Condition aggravated [Unknown]
  - Dizziness [Unknown]
  - Gait inability [Unknown]

NARRATIVE: CASE EVENT DATE: 20180412
